FAERS Safety Report 6828188-3 (Version None)
Quarter: 2010Q3

REPORT INFORMATION
  Report Type: 
  Country: None (occurrence: None)
  Receive Date: 20100709
  Receipt Date: 20100706
  Transmission Date: 20110219
  Serious: Yes (Other)
  Sender: FDA-Public Use
  Company Number: US-ABBOTT-10P-163-0655216-00

PATIENT
  Sex: Female
  Weight: 65.83 kg

DRUGS (14)
  1. HUMIRA [Suspect]
     Indication: COLITIS ULCERATIVE
     Dates: start: 20100217, end: 20100531
  2. HUMIRA [Suspect]
     Dates: start: 20100531, end: 20100614
  3. PRENATAL VITAMINS [Concomitant]
     Indication: PRODUCT USED FOR UNKNOWN INDICATION
     Route: 048
     Dates: start: 20100317, end: 20100614
  4. FOLIC ACID [Concomitant]
     Indication: PRODUCT USED FOR UNKNOWN INDICATION
     Route: 048
     Dates: start: 20100217, end: 20100614
  5. VITAMIN D [Concomitant]
     Indication: PRODUCT USED FOR UNKNOWN INDICATION
     Route: 048
     Dates: start: 20100217, end: 20100614
  6. CALCIUM CARBONATE [Concomitant]
     Indication: PRODUCT USED FOR UNKNOWN INDICATION
     Dosage: 2 PILLS 1.5 TIMES PER WEEK
     Route: 048
     Dates: start: 20100217, end: 20100614
  7. ZINC [Concomitant]
     Indication: BLOOD ZINC DECREASED
     Route: 048
     Dates: start: 20100421, end: 20100614
  8. FISH OIL [Concomitant]
     Indication: PRODUCT USED FOR UNKNOWN INDICATION
     Route: 048
     Dates: start: 20100217, end: 20100501
  9. VSL #3 CAPSULES [Concomitant]
     Indication: PROBIOTIC THERAPY
     Route: 048
     Dates: start: 20100217, end: 20100317
  10. CAFFEINE [Concomitant]
     Indication: PRODUCT USED FOR UNKNOWN INDICATION
     Dosage: 0.5 SERVING DIET COKE PER DAY
     Dates: start: 20100217, end: 20100614
  11. ASACOL [Concomitant]
     Indication: COLITIS ULCERATIVE
     Route: 048
     Dates: start: 20100217, end: 20100614
  12. ROWASA [Concomitant]
     Indication: COLITIS ULCERATIVE
     Dosage: 1 SUPPOSITORY TOPICAL: VAGINAL
     Route: 061
     Dates: start: 20100217, end: 20100614
  13. ZOLOFT [Concomitant]
     Indication: ANXIETY
     Route: 048
     Dates: start: 20100217, end: 20100317
  14. PREDNISONE [Concomitant]
     Indication: COLITIS ULCERATIVE
     Route: 048
     Dates: start: 20100523, end: 20100614

REACTIONS (4)
  - ABORTION SPONTANEOUS [None]
  - ANTEPARTUM HAEMORRHAGE [None]
  - DRUG EXPOSURE DURING PREGNANCY [None]
  - PREGNANCY [None]
